FAERS Safety Report 18840451 (Version 5)
Quarter: 2021Q2

REPORT INFORMATION
  Report Type: Report from Study
  Country: ES (occurrence: ES)
  Receive Date: 20210203
  Receipt Date: 20210405
  Transmission Date: 20210717
  Serious: Yes (Other)
  Sender: FDA-Public Use
  Company Number: ES-PFIZER INC-2021080074

PATIENT
  Age: 44 Year
  Sex: Male
  Weight: 91.4 kg

DRUGS (11)
  1. GLASDEGIB [Suspect]
     Active Substance: GLASDEGIB
     Dosage: 50 MG, DAILY
     Route: 048
     Dates: start: 20190118, end: 20190125
  2. RUXOLITINIB [Suspect]
     Active Substance: RUXOLITINIB
     Indication: LEUKAEMIA
     Dosage: UNK
     Route: 048
     Dates: start: 20180718
  3. PREDNISONE. [Concomitant]
     Active Substance: PREDNISONE
     Indication: GRAFT VERSUS HOST DISEASE
     Dosage: UNK
     Route: 048
     Dates: start: 20190101
  4. GLASDEGIB [Suspect]
     Active Substance: GLASDEGIB
     Dosage: 50 MG, DAILY
     Route: 048
     Dates: start: 20190101, end: 20190108
  5. ACICLOVIR [Concomitant]
     Active Substance: ACYCLOVIR
     Indication: PROPHYLAXIS
     Dosage: UNK
     Route: 048
     Dates: start: 20180606, end: 20181204
  6. GLASDEGIB [Suspect]
     Active Substance: GLASDEGIB
     Dosage: 50 MG, DAILY
     Route: 048
     Dates: start: 20190207, end: 20190226
  7. VALGANCICLOVIR. [Concomitant]
     Active Substance: VALGANCICLOVIR
     Indication: CYTOMEGALOVIRUS INFECTION
     Dosage: UNK
     Route: 048
     Dates: start: 20181208
  8. GLASDEGIB [Suspect]
     Active Substance: GLASDEGIB
     Indication: GRAFT VERSUS HOST DISEASE
     Dosage: 50 MG, DAILY
     Route: 048
     Dates: start: 20181126, end: 20181223
  9. DASATINIB. [Suspect]
     Active Substance: DASATINIB
     Indication: LEUKAEMIA
     Dosage: UNK
     Route: 048
     Dates: start: 20160418
  10. TEICOPLANINE [Concomitant]
     Active Substance: TEICOPLANIN
     Indication: BACTERAEMIA
     Dosage: UNK
     Dates: start: 20190212, end: 20190220
  11. CYCLOSPORINE. [Concomitant]
     Active Substance: CYCLOSPORINE
     Indication: GRAFT VERSUS HOST DISEASE
     Dosage: UNK
     Route: 048
     Dates: start: 20180726

REACTIONS (1)
  - Hepatotoxicity [Recovered/Resolved]

NARRATIVE: CASE EVENT DATE: 20190226
